FAERS Safety Report 13785542 (Version 2)
Quarter: 2017Q3

REPORT INFORMATION
  Report Type: Report from Study
  Country: None (occurrence: CA)
  Receive Date: 20170725
  Receipt Date: 20170813
  Transmission Date: 20171127
  Serious: Yes (Hospitalization, Other)
  Sender: FDA-Public Use
  Company Number: CA-ABBVIE-17K-028-2047930-00

PATIENT
  Age: 29 Year
  Sex: Female
  Weight: 54.5 kg

DRUGS (47)
  1. TRI-CYCLEN 28 [Concomitant]
     Route: 048
     Dates: start: 20170410
  2. DALTEPARIN [Concomitant]
     Active Substance: DALTEPARIN
     Indication: PRODUCT USED FOR UNKNOWN INDICATION
     Dosage: SYRINGE
     Route: 058
     Dates: start: 20170410, end: 2017
  3. LANSOPRAZOLE. [Concomitant]
     Active Substance: LANSOPRAZOLE
     Indication: PRODUCT USED FOR UNKNOWN INDICATION
     Route: 048
     Dates: start: 20170619
  4. DALTEPARIN [Concomitant]
     Active Substance: DALTEPARIN
     Indication: PRODUCT USED FOR UNKNOWN INDICATION
     Dosage: SYRINGE
     Route: 058
     Dates: start: 20170410
  5. FLAGYL [Concomitant]
     Active Substance: METRONIDAZOLE\METRONIDAZOLE HYDROCHLORIDE
     Indication: PRODUCT USED FOR UNKNOWN INDICATION
     Route: 048
  6. HUMIRA [Suspect]
     Active Substance: ADALIMUMAB
     Indication: CROHN^S DISEASE
     Route: 058
     Dates: start: 20141002
  7. SODIUM CHLORIDE 0.9%/1000ML [Concomitant]
     Dosage: FLUSH; PRO RE NATA 150 ML/HOUR TOTAL VOLUME: 1000ML
     Route: 042
     Dates: start: 20170617
  8. SODIUM CHLORIDE 9%/1000ML [Concomitant]
     Dosage: 150 ML/HOUR?TOTAL VOLUME:1000ML
     Route: 042
     Dates: start: 20170617
  9. AMITRIPTYLINE [Concomitant]
     Active Substance: AMITRIPTYLINE
     Dosage: BEDTIME
     Route: 048
     Dates: start: 20170617
  10. CITALOPRAM [Concomitant]
     Active Substance: CITALOPRAM HYDROBROMIDE
     Indication: PRODUCT USED FOR UNKNOWN INDICATION
     Route: 048
     Dates: start: 20170410
  11. VITAMIN B12 [Concomitant]
     Active Substance: CYANOCOBALAMIN
     Route: 030
     Dates: start: 20170617
  12. HUMIRA [Suspect]
     Active Substance: ADALIMUMAB
     Route: 058
     Dates: start: 20170618, end: 2017
  13. DEXILANT [Concomitant]
     Active Substance: DEXLANSOPRAZOLE
     Route: 048
     Dates: start: 201706
  14. PANCRELIPASE. [Concomitant]
     Active Substance: PANCRELIPASE
     Indication: PRODUCT USED FOR UNKNOWN INDICATION
     Dosage: WITH EACH MEAL AND SNACK
     Route: 048
     Dates: start: 201706
  15. SODIUM CHLORIDE 0.9%/1000ML [Concomitant]
     Indication: PRODUCT USED FOR UNKNOWN INDICATION
     Dosage: NORMAL SALINE BOLUS; INFUSE OVER ONE HOUR
     Route: 040
     Dates: start: 20170409, end: 20170409
  16. SODIUM CHLORIDE 9%/1000ML [Concomitant]
     Dosage: ML PER HOUR; TOTAL VOLUME 1000ML
     Route: 042
     Dates: start: 20170619
  17. AMITRIPTYLINE [Concomitant]
     Active Substance: AMITRIPTYLINE
     Dosage: BEDTIME
     Route: 048
     Dates: start: 20170409, end: 2017
  18. CITALOPRAM [Concomitant]
     Active Substance: CITALOPRAM HYDROBROMIDE
     Route: 048
     Dates: start: 20170618
  19. CELEXA [Concomitant]
     Active Substance: CITALOPRAM HYDROBROMIDE
     Indication: PRODUCT USED FOR UNKNOWN INDICATION
     Route: 048
     Dates: start: 20140619, end: 20140703
  20. DEXLANSOPRAZOLE [Concomitant]
     Active Substance: DEXLANSOPRAZOLE
     Indication: PRODUCT USED FOR UNKNOWN INDICATION
     Route: 048
     Dates: start: 20170411, end: 2017
  21. MATERNA [Concomitant]
     Active Substance: MINERALS\VITAMINS
     Dosage: 1 PILL
     Route: 048
  22. SODIUM CHLORIDE 0.9%/1000ML [Concomitant]
     Dosage: FLUSH; PRO RE NATA
     Route: 042
     Dates: start: 20170409
  23. AMITRIPTYLINE [Concomitant]
     Active Substance: AMITRIPTYLINE
     Indication: PRODUCT USED FOR UNKNOWN INDICATION
     Dosage: BEDTIME
     Route: 048
     Dates: start: 20170202, end: 2017
  24. CEFUROXIME. [Concomitant]
     Active Substance: CEFUROXIME
     Indication: PRODUCT USED FOR UNKNOWN INDICATION
     Route: 048
  25. VITAMIN B12 [Concomitant]
     Active Substance: CYANOCOBALAMIN
     Route: 030
     Dates: start: 20170409, end: 2017
  26. CEFTRIAXONE. [Concomitant]
     Active Substance: CEFTRIAXONE
     Indication: PRODUCT USED FOR UNKNOWN INDICATION
     Dosage: INFUSE OVER 30 MINUTES
     Route: 042
     Dates: start: 20170410, end: 20170414
  27. DALTEPARIN [Concomitant]
     Active Substance: DALTEPARIN
     Dosage: SYRINGE
     Route: 058
     Dates: start: 20170618
  28. DOMPERIDONE [Concomitant]
     Active Substance: DOMPERIDONE
     Dosage: BEFORE FOOD
     Route: 048
     Dates: start: 20170410, end: 2017
  29. DALTEPARIN [Concomitant]
     Active Substance: DALTEPARIN
     Dosage: SYRINGE
     Route: 058
     Dates: start: 20170618
  30. FLAGYL [Concomitant]
     Active Substance: METRONIDAZOLE\METRONIDAZOLE HYDROCHLORIDE
     Dosage: 500MG=100ML?INFUSE OVER 30 MINUTES
     Route: 042
     Dates: start: 20170410, end: 20170415
  31. HUMIRA [Suspect]
     Active Substance: ADALIMUMAB
     Route: 058
     Dates: start: 20170413, end: 2017
  32. HUMIRA [Suspect]
     Active Substance: ADALIMUMAB
     Route: 058
     Dates: start: 201706, end: 201706
  33. DEXILANT [Concomitant]
     Active Substance: DEXLANSOPRAZOLE
     Indication: PRODUCT USED FOR UNKNOWN INDICATION
     Route: 048
     Dates: start: 20170411
  34. DEXILANT [Concomitant]
     Active Substance: DEXLANSOPRAZOLE
     Route: 048
     Dates: start: 20170619
  35. TRI-CYCLEN 28 [Concomitant]
     Route: 048
  36. SODIUM CHLORIDE 9%/1000ML [Concomitant]
     Indication: PRODUCT USED FOR UNKNOWN INDICATION
     Dosage: 125 ML/HOUR?TOTAL VOLUME:1000ML
     Route: 042
     Dates: start: 20170409
  37. CELEXA [Concomitant]
     Active Substance: CITALOPRAM HYDROBROMIDE
     Route: 048
     Dates: start: 20140703
  38. DOMPERIDONE [Concomitant]
     Active Substance: DOMPERIDONE
     Indication: PRODUCT USED FOR UNKNOWN INDICATION
     Dosage: BEFORE FOOD
     Route: 048
     Dates: start: 20160623
  39. DOMPERIDONE [Concomitant]
     Active Substance: DOMPERIDONE
     Dosage: BEFORE FOOD
     Route: 048
     Dates: start: 20170618
  40. GADOBUTROL [Concomitant]
     Active Substance: GADOBUTROL
     Indication: PRODUCT USED FOR UNKNOWN INDICATION
     Dosage: ADHOC
     Route: 042
     Dates: start: 20170412, end: 20170412
  41. DEXLANSOPRAZOLE [Concomitant]
     Active Substance: DEXLANSOPRAZOLE
     Route: 048
     Dates: start: 20170619
  42. HUMIRA [Suspect]
     Active Substance: ADALIMUMAB
     Route: 058
     Dates: start: 20160623
  43. TRI-CYCLEN 28 [Concomitant]
     Indication: PRODUCT USED FOR UNKNOWN INDICATION
     Dates: start: 201706
  44. SODIUM CHLORIDE 0.9%/1000ML [Concomitant]
     Dosage: ML/HOUR?TOTAL VOLUME: 1000ML
     Route: 042
     Dates: start: 20170619
  45. CITALOPRAM [Concomitant]
     Active Substance: CITALOPRAM HYDROBROMIDE
     Route: 048
     Dates: start: 20170618
  46. VITAMIN B12 [Concomitant]
     Active Substance: CYANOCOBALAMIN
     Indication: PRODUCT USED FOR UNKNOWN INDICATION
     Dosage: 1000 MICROGRAM PER MILLILITERS
     Route: 030
     Dates: start: 20140508
  47. MATERNA [Concomitant]
     Active Substance: MINERALS\VITAMINS
     Indication: PRODUCT USED FOR UNKNOWN INDICATION
     Route: 048
     Dates: start: 20170618

REACTIONS (6)
  - Duodenal stenosis [Unknown]
  - Pancreatic fistula [Unknown]
  - Pancreatitis relapsing [Recovered/Resolved]
  - Flatulence [Unknown]
  - Hypersensitivity [Unknown]
  - Hypophagia [Unknown]

NARRATIVE: CASE EVENT DATE: 201608
